FAERS Safety Report 9979626 (Version 1)
Quarter: 2014Q1

REPORT INFORMATION
  Report Type: Report from Study
  Country: US (occurrence: US)
  Receive Date: 20140306
  Receipt Date: 20140306
  Transmission Date: 20141002
  Serious: No
  Sender: FDA-Public Use
  Company Number: US-ABBVIE-13P-163-1173114-00

PATIENT
  Age: 59 Year
  Sex: Female
  Weight: 113.5 kg

DRUGS (10)
  1. HUMIRA [Suspect]
     Indication: RHEUMATOID ARTHRITIS
     Route: 058
     Dates: start: 20130903, end: 201310
  2. HUMIRA [Suspect]
     Route: 058
     Dates: start: 20131105
  3. NABUMETONE [Concomitant]
     Indication: RHEUMATOID ARTHRITIS
  4. NABUMETONE [Concomitant]
     Indication: OSTEOARTHRITIS
  5. FOLIC ACID [Concomitant]
     Indication: VITAMIN SUPPLEMENTATION
  6. CLARITIN [Concomitant]
     Indication: SEASONAL ALLERGY
  7. METHADONE [Concomitant]
     Indication: OSTEOARTHRITIS
  8. VITAMIN D [Concomitant]
     Indication: VITAMIN D DEFICIENCY
  9. CALCIUM [Concomitant]
     Indication: VITAMIN SUPPLEMENTATION
  10. GARLIC [Concomitant]
     Indication: PRODUCT USED FOR UNKNOWN INDICATION

REACTIONS (3)
  - Wrong technique in drug usage process [Recovered/Resolved]
  - Dyspnoea [Recovered/Resolved]
  - Bronchitis [Recovered/Resolved]
